FAERS Safety Report 9337648 (Version 1)
Quarter: 2013Q2

REPORT INFORMATION
  Report Type: Spontaneous
  Country: US (occurrence: US)
  Receive Date: 20130607
  Receipt Date: 20130607
  Transmission Date: 20140414
  Serious: No
  Sender: FDA-Public Use
  Company Number: US-009507513-1306USA002920

PATIENT
  Age: 29 Year
  Sex: Male

DRUGS (1)
  1. SAPHRIS [Suspect]
     Indication: BIPOLAR DISORDER
     Dosage: 5 MG, QD, TABLET RAPID DISSOLVE
     Route: 060
     Dates: start: 20121101, end: 20130528

REACTIONS (3)
  - Hypoaesthesia oral [Unknown]
  - Oral discomfort [Unknown]
  - Incorrect dose administered [Unknown]
